FAERS Safety Report 15844483 (Version 1)
Quarter: 2019Q1

REPORT INFORMATION
  Report Type: Spontaneous
  Country: US (occurrence: US)
  Receive Date: 20190118
  Receipt Date: 20190118
  Transmission Date: 20190417
  Serious: No
  Sender: FDA-Public Use
  Company Number: US-LANNETT COMPANY, INC.-US-2017LAN001286

PATIENT
  Age: 5 Year
  Sex: Female

DRUGS (1)
  1. RANITIDINE HYDROCHLORIDE. [Suspect]
     Active Substance: RANITIDINE HYDROCHLORIDE
     Indication: GASTROOESOPHAGEAL REFLUX DISEASE
     Dosage: 3.5 ML, BID
     Route: 048
     Dates: start: 2015

REACTIONS (4)
  - Blister [Unknown]
  - Rhinorrhoea [Unknown]
  - Vomiting [Unknown]
  - Eczema [Unknown]

NARRATIVE: CASE EVENT DATE: 2017
